FAERS Safety Report 12654379 (Version 1)
Quarter: 2016Q3

REPORT INFORMATION
  Report Type: Spontaneous
  Country: US (occurrence: None)
  Receive Date: 20160815
  Receipt Date: 20160815
  Transmission Date: 20161109
  Serious: No
  Sender: FDA-Public Use
  Company Number: None

PATIENT
  Age: 29 Year
  Sex: Female

DRUGS (2)
  1. MYCOPHENOLIC TAB 360MG DR [Suspect]
     Active Substance: MYCOPHENOLIC ACID
  2. TACROLIMUS CAP 1MG [Suspect]
     Active Substance: TACROLIMUS

REACTIONS (3)
  - Nausea [None]
  - Paraesthesia [None]
  - Hot flush [None]

NARRATIVE: CASE EVENT DATE: 20160812
